FAERS Safety Report 22530529 (Version 8)
Quarter: 2025Q4

REPORT INFORMATION
  Report Type: Spontaneous
  Country: EU (occurrence: EU)
  Receive Date: 20230607
  Receipt Date: 20251202
  Transmission Date: 20260118
  Serious: Yes (Death, Hospitalization, Other)
  Sender: NOVARTIS
  Company Number: EU-002147023-NVSC2023BG126646

PATIENT
  Age: 11 Year
  Sex: Male

DRUGS (1)
  1. KYMRIAH [Suspect]
     Active Substance: TISAGENLECLEUCEL
     Indication: Acute lymphocytic leukaemia
     Dosage: UNK UNK, ONCE/SINGLE
     Route: 042
     Dates: start: 20230404

REACTIONS (12)
  - Acute myeloid leukaemia [Fatal]
  - Haemophagocytic lymphohistiocytosis [Not Recovered/Not Resolved]
  - Second primary malignancy [Unknown]
  - Disseminated intravascular coagulation [Unknown]
  - Thrombocytopenia [Unknown]
  - Hypofibrinogenaemia [Unknown]
  - Fibrin D dimer increased [Unknown]
  - Hepatosplenomegaly [Unknown]
  - Bone marrow failure [Unknown]
  - Pyrexia [Unknown]
  - Serum ferritin increased [Unknown]
  - Bone marrow disorder [Unknown]

NARRATIVE: CASE EVENT DATE: 20230517
